FAERS Safety Report 19208037 (Version 1)
Quarter: 2021Q2

REPORT INFORMATION
  Report Type: Spontaneous
  Country: US (occurrence: US)
  Receive Date: 20210503
  Receipt Date: 20210503
  Transmission Date: 20210717
  Serious: No
  Sender: FDA-Public Use
  Company Number: US-ABBVIE-20K-163-3546083-00

PATIENT
  Sex: Female

DRUGS (2)
  1. CREON [Suspect]
     Active Substance: PANCRELIPASE AMYLASE\PANCRELIPASE LIPASE\PANCRELIPASE PROTEASE
     Indication: PRODUCT USED FOR UNKNOWN INDICATION
     Route: 048
  2. ZENPEP [Suspect]
     Active Substance: PANCRELIPASE AMYLASE\PANCRELIPASE LIPASE\PANCRELIPASE PROTEASE
     Indication: PRODUCT USED FOR UNKNOWN INDICATION
     Dosage: 40 UNIT CAPSULES THREE TIMES A DAY
     Route: 065

REACTIONS (10)
  - Swelling of eyelid [Unknown]
  - Urticaria [Unknown]
  - Arrhythmia [Unknown]
  - Rash [Unknown]
  - Oral discomfort [Unknown]
  - Skin exfoliation [Unknown]
  - Stomatitis [Unknown]
  - Malaise [Unknown]
  - Skin irritation [Unknown]
  - Dysuria [Unknown]
